FAERS Safety Report 5319595-9 (Version None)
Quarter: 2007Q2

REPORT INFORMATION
  Report Type: 
  Country: None (occurrence: None)
  Receive Date: 20070502
  Receipt Date: 20070417
  Transmission Date: 20071010
  Serious: Yes (Hospitalization)
  Sender: FDA-Public Use
  Company Number: 6031105

PATIENT
  Age: 26 Year
  Sex: Female

DRUGS (8)
  1. LEVOTHYROXINE SODIUM [Suspect]
     Indication: HYPOTHYROIDISM
     Dosage: 125 MCG (125 MCG, 1 D);
  2. SALAZOPYRINE (500 MG, TABLET) (SUPFASALAZINE) [Suspect]
     Indication: DRUG USE FOR UNKNOWN INDICATION
     Dosage: 20000,0 MG; (1000 MG, 1 IN 1 D) ORAL
     Route: 048
     Dates: start: 20070109, end: 20070219
  3. SEROPLEX (ESCITALOPRAM OXALATE) [Suspect]
     Indication: DRUG USE FOR UNKNOWN INDICATION
     Dosage: ORAL
     Route: 048
     Dates: start: 20070214, end: 20070216
  4. LAMALINE (CAPSULE) (CAFFEINE, PARACETAMOL, ATROPA BELLADONNA EXTRACT, [Suspect]
     Indication: DRUG USE FOR UNKNOWN INDICATION
     Dates: start: 20070214, end: 20070216
  5. INDOCIN [Suspect]
     Indication: DRUG USE FOR UNKNOWN INDICATION
     Dosage: 150,000 MG (75 MG, 2 IN 1 D); ORAL
     Route: 048
     Dates: start: 20070101, end: 20070219
  6. PANOS (TABLET) (TETRAZEPAM) [Suspect]
     Indication: DRUG USE FOR UNKNOWN INDICATION
     Dosage: ORAL
     Route: 048
  7. PYOSTACINE (TABLET) (PRISTINAMYCIN) [Suspect]
     Dosage: ORAL
     Route: 048
     Dates: start: 20060901
  8. PYOSTACINE (TABLET) (PRISTINAMYCIN) [Suspect]
     Dosage: ORAL
     Route: 048
     Dates: start: 20070101

REACTIONS (15)
  - CYTOMEGALOVIRUS ANTIBODY POSITIVE [None]
  - DISEASE RECURRENCE [None]
  - HEPATIC ENZYME INCREASED [None]
  - HYPERSENSITIVITY [None]
  - HYPERVENTILATION [None]
  - LIVER DISORDER [None]
  - LYMPHADENOPATHY [None]
  - MONONUCLEOSIS SYNDROME [None]
  - OXYGEN SATURATION DECREASED [None]
  - PUSTULAR PSORIASIS [None]
  - PYREXIA [None]
  - RASH MACULO-PAPULAR [None]
  - RENAL FAILURE ACUTE [None]
  - SPLENOMEGALY [None]
  - URTICARIA [None]
